FAERS Safety Report 9845663 (Version 3)
Quarter: 2014Q1

REPORT INFORMATION
  Report Type: Report from Study
  Country: CA (occurrence: CA)
  Receive Date: 20140127
  Receipt Date: 20140131
  Transmission Date: 20141002
  Serious: Yes (Hospitalization)
  Sender: FDA-Public Use
  Company Number: PHHY2013CA090833

PATIENT
  Age: 26 Year
  Sex: Male
  Weight: 77 kg

DRUGS (7)
  1. FTY 720 [Suspect]
     Indication: RELAPSING-REMITTING MULTIPLE SCLEROSIS
     Dosage: 0.5 MG, QD
     Route: 048
     Dates: start: 20130516
  2. FTY 720 [Suspect]
     Dosage: 0.5 MG, QD
     Route: 048
     Dates: start: 20130827, end: 20140115
  3. AMANTADINE [Concomitant]
     Indication: FATIGUE
     Dates: start: 20120706
  4. VITAMIN D [Concomitant]
     Dates: start: 20101216
  5. CIALIS [Concomitant]
     Indication: ERECTILE DYSFUNCTION
     Dates: start: 20111012
  6. NUTRITION SUPPLEMENTS [Concomitant]
  7. AAS [Concomitant]
     Indication: CEREBROVASCULAR ACCIDENT
     Dates: start: 20130121

REACTIONS (7)
  - Multiple sclerosis relapse [Recovered/Resolved]
  - Confusional state [Recovering/Resolving]
  - Central nervous system lesion [Recovering/Resolving]
  - Amnesia [Recovering/Resolving]
  - Gait disturbance [Recovering/Resolving]
  - Drug intolerance [Unknown]
  - Drug ineffective [Unknown]
